FAERS Safety Report 12136702 (Version 4)
Quarter: 2016Q2

REPORT INFORMATION
  Report Type: Spontaneous
  Country: HU (occurrence: HU)
  Receive Date: 20160302
  Receipt Date: 20160518
  Transmission Date: 20160815
  Serious: Yes (Death)
  Sender: FDA-Public Use
  Company Number: HU-TOLMAR, INC.-2016HU001959

PATIENT
  Sex: Male

DRUGS (1)
  1. ELIGARD [Suspect]
     Active Substance: LEUPROLIDE ACETATE
     Indication: PROSTATE CANCER METASTATIC
     Dosage: 22.5 MG, Q3MONTHS
     Route: 058
     Dates: start: 201402, end: 20151222

REACTIONS (1)
  - Cardiac failure [Fatal]
